FAERS Safety Report 21160656 (Version 2)
Quarter: 2022Q3

REPORT INFORMATION
  Report Type: Spontaneous
  Country: US (occurrence: US)
  Receive Date: 20220802
  Receipt Date: 20220830
  Transmission Date: 20221027
  Serious: No
  Sender: FDA-Public Use
  Company Number: US-UNITED THERAPEUTICS-UNT-2022-016931

PATIENT
  Sex: Male

DRUGS (3)
  1. TYVASO [Suspect]
     Active Substance: TREPROSTINIL
     Indication: Pulmonary arterial hypertension
     Dosage: UNK
     Dates: start: 20200922
  2. TYVASO [Suspect]
     Active Substance: TREPROSTINIL
     Dosage: 54 ?G, QID
  3. TYVASO [Suspect]
     Active Substance: TREPROSTINIL
     Dosage: 36 ?G, QID

REACTIONS (6)
  - Dyspnoea [Recovering/Resolving]
  - Diarrhoea [Recovering/Resolving]
  - Swelling [Recovering/Resolving]
  - Peripheral swelling [Recovering/Resolving]
  - COVID-19 [Recovering/Resolving]
  - Chest pain [Recovering/Resolving]

NARRATIVE: CASE EVENT DATE: 20220101
